FAERS Safety Report 5311226-7 (Version None)
Quarter: 2007Q2

REPORT INFORMATION
  Report Type: 
  Country: None (occurrence: None)
  Receive Date: 20070430
  Receipt Date: 20070419
  Transmission Date: 20071010
  Serious: Yes (Disabling)
  Sender: FDA-Public Use
  Company Number: PHNR2007AU00909

PATIENT
  Age: 83 Year
  Sex: Male

DRUGS (6)
  1. ANTIBIOTICS [Concomitant]
     Indication: OSTEONECROSIS
     Dates: start: 20070101
  2. PAMIDRONATE DISODIUM [Suspect]
     Indication: MULTIPLE MYELOMA
     Dosage: UNK, UNK
     Dates: start: 20040101, end: 20070320
  3. CHEMOTHERAPEUTICS NOS [Concomitant]
     Dates: start: 20040101, end: 20070101
  4. MELPHALAN [Concomitant]
     Indication: MULTIPLE MYELOMA
  5. THALIDOMIDE [Concomitant]
     Indication: MULTIPLE MYELOMA
  6. CORTICOSTEROID NOS [Concomitant]
     Indication: MULTIPLE MYELOMA
     Dosage: 25 MG, Q48H

REACTIONS (5)
  - BONE DISORDER [None]
  - GINGIVAL PAIN [None]
  - OSTEONECROSIS [None]
  - PAIN IN JAW [None]
  - SOFT TISSUE INFECTION [None]
